FAERS Safety Report 5273327-1 (Version None)
Quarter: 2007Q1

REPORT INFORMATION
  Report Type: 
  Country: None (occurrence: None)
  Receive Date: 20070319
  Receipt Date: 20070306
  Transmission Date: 20070707
  Serious: Yes (Other)
  Sender: FDA-Public Use
  Company Number: 2007SP004251

PATIENT
  Age: 36 Year
  Sex: Female

DRUGS (1)
  1. DESLORATADINE [Suspect]
     Indication: DERMATITIS ALLERGIC
     Dosage: 5 MG
     Dates: start: 20070205, end: 20070206

REACTIONS (4)
  - ARRHYTHMIA [None]
  - BLOOD PRESSURE INCREASED [None]
  - EXTRASYSTOLES [None]
  - PALPITATIONS [None]
